FAERS Safety Report 10036420 (Version 2)
Quarter: 2014Q1

REPORT INFORMATION
  Report Type: Spontaneous
  Country: US (occurrence: US)
  Receive Date: 20140325
  Receipt Date: 20140325
  Transmission Date: 20141002
  Serious: Yes (Other)
  Sender: FDA-Public Use
  Company Number: US-GE HEALTHCARE MEDICAL DIAGNOSTICS-OSCN-PR-1108S-0169

PATIENT
  Sex: 0

DRUGS (10)
  1. OMNISCAN [Suspect]
     Indication: PRODUCT USED FOR UNKNOWN INDICATION
     Route: 042
     Dates: start: 20021204, end: 20021204
  2. OMNISCAN [Suspect]
     Route: 042
     Dates: start: 20021211, end: 20021211
  3. OMNISCAN [Suspect]
     Route: 042
     Dates: start: 20031101, end: 20031101
  4. OMNISCAN [Suspect]
     Route: 042
     Dates: start: 20040916, end: 20040916
  5. GADOLINIUM (UNSPECIFIED) [Suspect]
     Indication: PRODUCT USED FOR UNKNOWN INDICATION
     Route: 042
     Dates: start: 19971003, end: 19971003
  6. GADOLINIUM (UNSPECIFIED) [Suspect]
     Route: 042
     Dates: start: 19990216, end: 19990216
  7. GADOLINIUM (UNSPECIFIED) [Suspect]
     Route: 042
     Dates: start: 20020712, end: 20020712
  8. GADOLINIUM (UNSPECIFIED) [Suspect]
     Route: 042
     Dates: start: 20020825, end: 20020825
  9. GADOLINIUM (UNSPECIFIED) [Suspect]
     Route: 042
     Dates: start: 20021211, end: 20021211
  10. GADOLINIUM (UNSPECIFIED) [Suspect]
     Route: 042
     Dates: start: 20031101, end: 20031101

REACTIONS (1)
  - Nephrogenic systemic fibrosis [Not Recovered/Not Resolved]
